FAERS Safety Report 8517324-9 (Version None)
Quarter: 2012Q3

REPORT INFORMATION
  Report Type: 
  Country: None (occurrence: None)
  Receive Date: 20120718
  Receipt Date: 20120712
  Transmission Date: 20120928
  Serious: Yes (Other)
  Sender: FDA-Public Use
  Company Number: AU-PFIZER INC-2012169215

PATIENT
  Age: 10 Year
  Sex: Male

DRUGS (3)
  1. RIFAMPICIN [Suspect]
  2. ISONIAZID [Suspect]
  3. PYRAZINAMIDE [Suspect]

REACTIONS (1)
  - ACUTE HEPATIC FAILURE [None]
